FAERS Safety Report 13008144 (Version 1)
Quarter: 2016Q4

REPORT INFORMATION
  Report Type: Spontaneous
  Country: US (occurrence: US)
  Receive Date: 20161208
  Receipt Date: 20161208
  Transmission Date: 20170207
  Serious: Yes (Other)
  Sender: FDA-Public Use
  Company Number: US-ROCHE-1864010

PATIENT
  Sex: Male

DRUGS (1)
  1. KLONOPIN [Suspect]
     Active Substance: CLONAZEPAM
     Indication: NEOPLASM MALIGNANT
     Dosage: PILL
     Route: 048
     Dates: start: 1984

REACTIONS (6)
  - Decreased appetite [Unknown]
  - Throat cancer [Unknown]
  - Off label use [Unknown]
  - Pharyngeal neoplasm [Unknown]
  - Haemoptysis [Unknown]
  - Dysphagia [Unknown]
